FAERS Safety Report 7763736-0 (Version None)
Quarter: 2011Q3

REPORT INFORMATION
  Report Type: 
  Country: None (occurrence: None)
  Receive Date: 20110921
  Receipt Date: 20110912
  Transmission Date: 20111222
  Serious: Yes (Other)
  Sender: FDA-Public Use
  Company Number: DE-AMGEN-DEUCT2011047258

PATIENT
  Age: 45 Year
  Sex: Female
  Weight: 101 kg

DRUGS (4)
  1. ELOSALIC [Concomitant]
     Indication: PSORIASIS
     Dosage: UNK
     Dates: start: 20091001
  2. CALCIPOTRIENE [Concomitant]
     Indication: PSORIASIS
     Dosage: UNK
     Dates: start: 20091001
  3. ETANERCEPT [Suspect]
     Indication: PSORIASIS
     Dosage: 50 MG, 2 TIMES/WK
     Dates: start: 20110103, end: 20110101
  4. DOVOBET [Concomitant]
     Indication: PSORIASIS
     Dosage: UNK
     Dates: start: 20091001

REACTIONS (1)
  - RENAL CELL CARCINOMA [None]
